FAERS Safety Report 23494807 (Version 1)
Quarter: 2024Q1

REPORT INFORMATION
  Report Type: Spontaneous
  Country: RU (occurrence: RU)
  Receive Date: 20240207
  Receipt Date: 20240207
  Transmission Date: 20240410
  Serious: Yes (Other)
  Sender: FDA-Public Use
  Company Number: RU-AMGEN-RUSSP2024021465

PATIENT
  Age: 48 Year
  Sex: Female

DRUGS (5)
  1. CINACALCET HYDROCHLORIDE [Suspect]
     Active Substance: CINACALCET HYDROCHLORIDE
     Indication: Hyperparathyroidism
     Dosage: 30 MILLIGRAM, QD
     Route: 065
  2. ETELCALCETIDE [Suspect]
     Active Substance: ETELCALCETIDE
     Indication: Hyperparathyroidism tertiary
     Dosage: 15 MILLIGRAM/3 ML (THREE TIMES PER WEEK)
     Route: 065
     Dates: start: 2022
  3. ALFACALCIDOL [Concomitant]
     Active Substance: ALFACALCIDOL
     Dosage: 1 MICROGRAM, QD
     Route: 065
  4. CALCIUM CARBONATE [Concomitant]
     Active Substance: CALCIUM CARBONATE
     Dosage: UNK
     Route: 065
  5. SEVELAMER HYDROCHLORIDE [Concomitant]
     Active Substance: SEVELAMER HYDROCHLORIDE
     Dosage: 4800 MILLIGRAM, TID
     Route: 065

REACTIONS (7)
  - Chronic kidney disease-mineral and bone disorder [Unknown]
  - Parathyroid tumour malignant [Unknown]
  - Spinal compression fracture [Unknown]
  - Hyperparathyroidism tertiary [Unknown]
  - Parathyroid hyperplasia [Unknown]
  - Hypocalcaemia [Unknown]
  - Off label use [Unknown]

NARRATIVE: CASE EVENT DATE: 20130101
